FAERS Safety Report 4525789-2 (Version None)
Quarter: 2004Q4

REPORT INFORMATION
  Report Type: 
  Country: None (occurrence: None)
  Receive Date: 20041116
  Receipt Date: 20040909
  Transmission Date: 20050328
  Serious: No
  Sender: FDA-Public Use
  Company Number: S04-USA-06096-01

PATIENT
  Age: 54 Year
  Sex: Female

DRUGS (3)
  1. NAMENDA [Suspect]
     Indication: AMNESIA
     Dosage: 5 MG QD PO
     Route: 048
     Dates: start: 20040830, end: 20040904
  2. ESTRADIOL [Concomitant]
  3. THYROID TAB [Concomitant]

REACTIONS (1)
  - JOINT SWELLING [None]
